FAERS Safety Report 5306451-5 (Version None)
Quarter: 2007Q2

REPORT INFORMATION
  Report Type: 
  Country: None (occurrence: None)
  Receive Date: 20070417
  Receipt Date: 20070403
  Transmission Date: 20071010
  Serious: Yes (Hospitalization)
  Sender: FDA-Public Use
  Company Number: 2007P1000176

PATIENT
  Age: 79 Year
  Sex: Female

DRUGS (5)
  1. NICARDIPINE HYDROCHLORIDE [Suspect]
     Indication: DRUG USE FOR UNKNOWN INDICATION
     Dosage: 100 MG; ; PO
     Route: 048
     Dates: end: 20070129
  2. DIGOXIN [Concomitant]
  3. TRANXENE [Concomitant]
  4. ENOXAPARIN SODIUM [Concomitant]
  5. ESCITALOPRAM [Concomitant]

REACTIONS (1)
  - HEPATITIS [None]
